FAERS Safety Report 5641932-6 (Version None)
Quarter: 2008Q1

REPORT INFORMATION
  Report Type: 
  Country: None (occurrence: None)
  Receive Date: 20080227
  Receipt Date: 20080215
  Transmission Date: 20080703
  Serious: Yes (Other)
  Sender: FDA-Public Use
  Company Number: PT-PFIZER INC-2007102494

PATIENT
  Sex: Male
  Weight: 96 kg

DRUGS (3)
  1. CHANTIX [Suspect]
     Indication: SMOKING CESSATION THERAPY
     Route: 048
     Dates: start: 20071101, end: 20080101
  2. CHANTIX [Suspect]
     Route: 048
     Dates: start: 20071104, end: 20071107
  3. CHANTIX [Suspect]
     Route: 048

REACTIONS (3)
  - HEADACHE [None]
  - NERVOUSNESS [None]
  - PNEUMONIA [None]
